FAERS Safety Report 8209285-7 (Version None)
Quarter: 2012Q1

REPORT INFORMATION
  Report Type: 
  Country: None (occurrence: None)
  Receive Date: 20120227
  Receipt Date: 20111214
  Transmission Date: 20120608
  Serious: No
  Sender: FDA-Public Use
  Company Number: 342034

PATIENT
  Age: 64 Year
  Sex: Female

DRUGS (1)
  1. VICTOZA [Suspect]
     Indication: PRODUCT USED FOR UNKNOWN INDICATION
     Dosage: 1.2 MG, UNK, SUBCUTANEOUS
     Route: 058
     Dates: start: 20111212

REACTIONS (5)
  - GASTROOESOPHAGEAL REFLUX DISEASE [None]
  - DECREASED APPETITE [None]
  - BLOOD GLUCOSE DECREASED [None]
  - ERUCTATION [None]
  - DYSPEPSIA [None]
